FAERS Safety Report 5062853-6 (Version None)
Quarter: 2006Q3

REPORT INFORMATION
  Report Type: 
  Country: None (occurrence: None)
  Receive Date: 20060724
  Receipt Date: 20060717
  Transmission Date: 20061208
  Serious: Yes (Other)
  Sender: FDA-Public Use
  Company Number: 2006P1000323

PATIENT
  Age: 64 Year
  Sex: 0
  Weight: 86 kg

DRUGS (4)
  1. RETEPLASE (RETEPLASE) [Suspect]
     Indication: ACUTE MYOCARDIAL INFARCTION
     Dosage: 5 IU; X2; IV
     Route: 042
     Dates: start: 20050119
  2. REOPRO [Suspect]
     Indication: ACUTE MYOCARDIAL INFARCTION
     Dosage: 10 ML; X1; IV;   250 ML; IV
     Route: 042
     Dates: start: 20050119, end: 20050119
  3. REOPRO [Suspect]
     Indication: ACUTE MYOCARDIAL INFARCTION
     Dosage: 10 ML; X1; IV;   250 ML; IV
     Route: 042
     Dates: start: 20050119, end: 20050119
  4. HEPARIN [Concomitant]

REACTIONS (1)
  - MYOCARDIAL ISCHAEMIA [None]
